FAERS Safety Report 6567306-1 (Version None)
Quarter: 2010Q1

REPORT INFORMATION
  Report Type: 
  Country: None (occurrence: None)
  Receive Date: 20100202
  Receipt Date: 20100120
  Transmission Date: 20100710
  Serious: Yes (Other)
  Sender: FDA-Public Use
  Company Number: PHEH2009US18684

PATIENT
  Sex: Female

DRUGS (8)
  1. GLEEVEC [Suspect]
     Indication: CHRONIC MYELOID LEUKAEMIA
     Dosage: 400 MG, QD
     Route: 048
     Dates: start: 20090921, end: 20091217
  2. GLEEVEC [Suspect]
     Dosage: 300 MG, QD
     Dates: start: 20091223
  3. NEXIUM [Concomitant]
     Dosage: QQ
  4. ATENOLOL [Concomitant]
     Dosage: 160 MG, QD
  5. LISINOPRIL [Concomitant]
     Dosage: 10 MG, QD
  6. ALLOPURINOL [Concomitant]
     Dosage: 300 MG, QD
  7. MULTI-VITAMINS [Concomitant]
     Dosage: UNK
  8. TYLENOL (CAPLET) [Concomitant]
     Dosage: 625 MG, UNK

REACTIONS (26)
  - ATELECTASIS [None]
  - BLOOD ALBUMIN ABNORMAL [None]
  - BLOOD ALKALINE PHOSPHATASE ABNORMAL [None]
  - BLOOD CREATININE INCREASED [None]
  - BRAIN NATRIURETIC PEPTIDE INCREASED [None]
  - CARDIAC FAILURE CONGESTIVE [None]
  - DYSPNOEA EXERTIONAL [None]
  - FLUID OVERLOAD [None]
  - FLUID RETENTION [None]
  - GASTROOESOPHAGEAL REFLUX DISEASE [None]
  - GRANULOCYTE COUNT DECREASED [None]
  - HAEMATOCRIT DECREASED [None]
  - HAEMOGLOBIN DECREASED [None]
  - HYPERTENSION [None]
  - IRRITABLE BOWEL SYNDROME [None]
  - LYMPHOCYTE COUNT INCREASED [None]
  - MEAN CELL HAEMOGLOBIN CONCENTRATION DECREASED [None]
  - MEAN CELL HAEMOGLOBIN DECREASED [None]
  - MONOCYTE COUNT INCREASED [None]
  - NEUTROPENIA [None]
  - OEDEMA PERIPHERAL [None]
  - OSTEOARTHRITIS [None]
  - RED CELL DISTRIBUTION WIDTH INCREASED [None]
  - RENAL FAILURE [None]
  - WEIGHT DECREASED [None]
  - WEIGHT INCREASED [None]
